FAERS Safety Report 13881770 (Version 2)
Quarter: 2017Q3

REPORT INFORMATION
  Report Type: Report from Study
  Country: AR (occurrence: AR)
  Receive Date: 20170818
  Receipt Date: 20170830
  Transmission Date: 20171127
  Serious: Yes (Hospitalization, Other)
  Sender: FDA-Public Use
  Company Number: PHHY2017AR120122

PATIENT
  Sex: Female

DRUGS (5)
  1. DIOVAN [Suspect]
     Active Substance: VALSARTAN
     Indication: HYPERTENSION
     Dosage: 1 DF, QD (FROM 4 TO 5 YEARS)
     Route: 065
  2. DIOVAN [Suspect]
     Active Substance: VALSARTAN
     Dosage: 0.5 DF (160 MG), UNK
     Route: 065
  3. RIVOTRIL [Concomitant]
     Active Substance: CLONAZEPAM
     Indication: EPILEPSY
     Dosage: 2 MG, QD
     Route: 065
  4. TERLOC [Concomitant]
     Indication: BLOOD PRESSURE INCREASED
     Dosage: 5 MG, PRN
     Route: 065
  5. RIVOTRIL [Concomitant]
     Active Substance: CLONAZEPAM
     Indication: SEIZURE

REACTIONS (9)
  - Pyrexia [Unknown]
  - Blood pressure increased [Unknown]
  - Cough [Recovering/Resolving]
  - Influenza [Recovered/Resolved]
  - Bronchitis [Recovering/Resolving]
  - Wrong technique in product usage process [Recovering/Resolving]
  - Hallucination [Unknown]
  - Pneumonia [Recovered/Resolved]
  - Blood pressure decreased [Unknown]
